FAERS Safety Report 5167080-X (Version None)
Quarter: 2006Q4

REPORT INFORMATION
  Report Type: 
  Country: None (occurrence: None)
  Receive Date: 20061207
  Receipt Date: 20061201
  Transmission Date: 20070319
  Serious: Yes (Other)
  Sender: FDA-Public Use
  Company Number: 2006UW26999

PATIENT

DRUGS (1)
  1. NEXIUM [Suspect]
     Route: 048
     Dates: start: 20060101

REACTIONS (1)
  - HYPOGAMMAGLOBULINAEMIA [None]
